FAERS Safety Report 9508569 (Version 1)
Quarter: 2013Q1

REPORT INFORMATION
  Report Type: Spontaneous
  Country: US (occurrence: None)
  Receive Date: 20130305
  Receipt Date: 20130305
  Transmission Date: 20140127
  Serious: Yes (Other)
  Sender: FDA-Public Use
  Company Number: 163-21880-12081297

PATIENT
  Age: 45 Year
  Sex: Female
  Weight: 133.36 kg

DRUGS (11)
  1. REVLIMID [Suspect]
     Indication: PLASMA CELL MYELOMA
     Dosage: 20 MG, QD X 2 WEEKS Q 3 WEEKS, PO
     Route: 048
     Dates: start: 20120401
  2. FLEXIRIL (CYCLOBENZAPRINE) (UNKNOWN) [Concomitant]
  3. DEXAMETHASONE (DEXAMETHASONE) (UNKNOWN) [Concomitant]
  4. EFFEXOR SR (VENLAFAXINE HYDROCHLORIDE) (UNKNOWN) [Concomitant]
  5. FENTANYL (FENTANYL) (UNKNOWN) (FENTANYL) [Concomitant]
  6. IBUROFEN (IBUPROFEN) (UNKNOWN) [Concomitant]
  7. LIDOCAINE (LIDOCAINE) (UNKNOWN) [Concomitant]
  8. PEPCID (FAMOTIDINE) (UNKNOWN) [Concomitant]
  9. TYLENOL WITH CODEINE (PANADEINE CO) (UNKNOWN) [Concomitant]
  10. VELCADE (UNKNOWN) [Concomitant]
  11. ZOFRAN (ONDANSETRON HYDROCHLORIDE) (UNKNOWN) [Concomitant]

REACTIONS (1)
  - Hot flush [None]
